FAERS Safety Report 8117841-X (Version None)
Quarter: 2012Q1

REPORT INFORMATION
  Report Type: 
  Country: None (occurrence: None)
  Receive Date: 20120207
  Receipt Date: 20120130
  Transmission Date: 20120608
  Serious: Yes (Disabling, Other)
  Sender: FDA-Public Use
  Company Number: NO-TEVA-313985ISR

PATIENT
  Age: 54 Year
  Sex: Male

DRUGS (5)
  1. FOLSYRE [Concomitant]
     Dosage: 1MG, 1X/DAY, 5 DAYS A WEEK
     Dates: start: 20050101
  2. METHOTREXATE [Suspect]
     Indication: PSORIASIS
     Dosage: 15-20MG, UNK
     Route: 048
     Dates: start: 20050101, end: 20111201
  3. METHOTREXATE [Suspect]
     Indication: ARTHRITIS
     Dosage: 15 MG, UNK
  4. LISINOPRIL AND HYDROCHLOROTHIAZIDE [Concomitant]
     Indication: HYPERTENSION
     Dosage: 10/12.5MG; HALF TABLET DAILY
     Dates: start: 20110601
  5. IBRUPROFEN [Concomitant]
     Dosage: 800MG, AS NEEDED

REACTIONS (4)
  - MONOPARESIS [None]
  - HYPERREFLEXIA [None]
  - MYOCLONUS [None]
  - DYSKINESIA [None]
